FAERS Safety Report 18867066 (Version 3)
Quarter: 2025Q2

REPORT INFORMATION
  Report Type: Other
  Country: GB (occurrence: GB)
  Receive Date: 20210208
  Receipt Date: 20250523
  Transmission Date: 20250717
  Serious: Yes (Disabling, Congenital Anomaly, Other)
  Sender: LUPIN
  Company Number: GB-SA-2015SA215941

PATIENT
  Sex: Female

DRUGS (3)
  1. DIVALPROEX SODIUM [Suspect]
     Active Substance: DIVALPROEX SODIUM
     Indication: Product used for unknown indication
     Route: 065
  2. EPILIM [Suspect]
     Active Substance: VALPROATE SODIUM
     Indication: Product used for unknown indication
  3. VALPROIC ACID [Suspect]
     Active Substance: VALPROIC ACID
     Indication: Product used for unknown indication

REACTIONS (25)
  - Foetal anticonvulsant syndrome [Unknown]
  - Foetal exposure during pregnancy [Unknown]
  - Illness [Unknown]
  - Developmental delay [Unknown]
  - Speech disorder developmental [Unknown]
  - Dysmorphism [Unknown]
  - Cerebral palsy [Unknown]
  - Incontinence [Unknown]
  - Talipes [Unknown]
  - Hypermobility syndrome [Unknown]
  - Autism spectrum disorder [Unknown]
  - Dyspraxia [Unknown]
  - Asthma [Unknown]
  - Hyperacusis [Unknown]
  - Deafness [Unknown]
  - Learning disability [Unknown]
  - Epilepsy [Unknown]
  - Physical disability [Unknown]
  - Mental disability [Unknown]
  - Speech sound disorder [Unknown]
  - Autism spectrum disorder [Unknown]
  - Sensory processing disorder [Unknown]
  - Language disorder [Unknown]
  - Attention deficit hyperactivity disorder [Unknown]
  - Gait disturbance [Unknown]
